FAERS Safety Report 15912235 (Version 2)
Quarter: 2021Q1

REPORT INFORMATION
  Report Type: Spontaneous
  Country: US (occurrence: US)
  Receive Date: 20190204
  Receipt Date: 20210201
  Transmission Date: 20210419
  Serious: Yes (Other)
  Sender: FDA-Public Use
  Company Number: US-ABBVIE-18K-163-2459461-00

PATIENT
  Sex: Female

DRUGS (1)
  1. HUMIRA [Suspect]
     Active Substance: ADALIMUMAB
     Indication: HIDRADENITIS
     Route: 058
     Dates: start: 2015

REACTIONS (25)
  - Attention deficit hyperactivity disorder [Unknown]
  - Diffuse idiopathic skeletal hyperostosis [Unknown]
  - Glucose tolerance impaired [Unknown]
  - Polycystic ovaries [Unknown]
  - Diabetes mellitus [Unknown]
  - Wound infection [Unknown]
  - Maternal exposure during pregnancy [Unknown]
  - Ankylosing spondylitis [Unknown]
  - Anxiety [Unknown]
  - Surgery [Unknown]
  - Sleep apnoea syndrome [Unknown]
  - Gestational diabetes [Unknown]
  - Staphylococcal infection [Unknown]
  - Hidradenitis [Unknown]
  - Exocrine pancreatic function test abnormal [Unknown]
  - Immunosuppression [Unknown]
  - Drug ineffective [Unknown]
  - Osteoarthritis [Unknown]
  - Illness [Unknown]
  - Stress [Unknown]
  - Sepsis [Unknown]
  - Insulin resistance [Unknown]
  - Back injury [Unknown]
  - Depression [Unknown]
  - Cellulitis [Unknown]

NARRATIVE: CASE EVENT DATE: 2020
